FAERS Safety Report 6008105-9 (Version None)
Quarter: 2008Q4

REPORT INFORMATION
  Report Type: 
  Country: None (occurrence: None)
  Receive Date: 20081217
  Receipt Date: 20080822
  Transmission Date: 20090506
  Serious: No
  Sender: FDA-Public Use
  Company Number: US-ASTRAZENECA-2008UW17313

PATIENT
  Age: 19616 Day
  Sex: Female

DRUGS (1)
  1. CRESTOR [Suspect]
     Route: 048
     Dates: start: 20080601, end: 20080808

REACTIONS (3)
  - ALOPECIA [None]
  - PRURITUS [None]
  - RASH PAPULAR [None]
